FAERS Safety Report 8546447-3 (Version None)
Quarter: 2012Q3

REPORT INFORMATION
  Report Type: 
  Country: None (occurrence: None)
  Receive Date: 20120727
  Receipt Date: 20120110
  Transmission Date: 20120928
  Serious: No
  Sender: FDA-Public Use
  Company Number: US-ASTRAZENECA-2012SE01958

PATIENT
  Age: 31 Year
  Sex: Male
  Weight: 82.6 kg

DRUGS (2)
  1. SEROQUEL [Suspect]
     Indication: ANXIETY
     Route: 048
  2. OTHER MEDICATIONS [Concomitant]

REACTIONS (2)
  - OFF LABEL USE [None]
  - DRUG SCREEN FALSE POSITIVE [None]
